FAERS Safety Report 8546641-1 (Version None)
Quarter: 2012Q3

REPORT INFORMATION
  Report Type: 
  Country: None (occurrence: None)
  Receive Date: 20120727
  Receipt Date: 20120720
  Transmission Date: 20120928
  Serious: Yes (Other)
  Sender: FDA-Public Use
  Company Number: US-RB-042568-12

PATIENT
  Age: 53 Year
  Sex: Male

DRUGS (1)
  1. SUBOXONE [Suspect]
     Indication: PRODUCT USED FOR UNKNOWN INDICATION
     Dosage: DOSAGE DETAILS UNKNOWN
     Route: 065

REACTIONS (7)
  - PANIC ATTACK [None]
  - TACHYPHRENIA [None]
  - SUICIDAL IDEATION [None]
  - DEHYDRATION [None]
  - MENTAL DISORDER [None]
  - ANXIETY [None]
  - DEPRESSION [None]
